FAERS Safety Report 7131464-0 (Version None)
Quarter: 2010Q4

REPORT INFORMATION
  Report Type: 
  Country: None (occurrence: None)
  Receive Date: 20101201
  Receipt Date: 20101125
  Transmission Date: 20110411
  Serious: Yes (Death, Life-Threatening)
  Sender: FDA-Public Use
  Company Number: FR-PFIZER INC-2010111481

PATIENT
  Age: 83 Year
  Sex: Male

DRUGS (9)
  1. VFEND [Suspect]
     Indication: BRONCHOPULMONARY ASPERGILLOSIS
     Dosage: 400 MG, 2X/DAY
     Route: 042
     Dates: start: 20100729, end: 20100809
  2. TAZOCILLINE [Suspect]
     Indication: PSEUDOMONAL BACTERAEMIA
     Dosage: 4 G, 3X/DAY
     Route: 042
     Dates: start: 20100728, end: 20100809
  3. INIPOMP [Suspect]
     Dosage: UNK
     Route: 042
     Dates: start: 20100710
  4. CORDARONE [Suspect]
     Dosage: UNK
     Route: 048
     Dates: start: 20100701
  5. VANCOMYCIN [Suspect]
     Indication: PSEUDOMONAL BACTERAEMIA
     Dosage: 500 MG, 3X/DAY
     Route: 042
     Dates: start: 20100728, end: 20100808
  6. AMIKACIN [Suspect]
     Dosage: UNK
     Route: 042
     Dates: start: 20100710
  7. FUROSEMIDE [Suspect]
     Dosage: UNK
     Route: 042
     Dates: start: 20100701
  8. VASTAREL [Concomitant]
  9. TANAKAN [Concomitant]

REACTIONS (7)
  - ACUTE RESPIRATORY DISTRESS SYNDROME [None]
  - AGRANULOCYTOSIS [None]
  - COAGULOPATHY [None]
  - HEPATOCELLULAR INJURY [None]
  - MULTI-ORGAN FAILURE [None]
  - RENAL FAILURE ACUTE [None]
  - SEPTIC SHOCK [None]
